FAERS Safety Report 17553474 (Version 1)
Quarter: 2020Q1

REPORT INFORMATION
  Report Type: Report from Study
  Country: GB (occurrence: GB)
  Receive Date: 20200317
  Receipt Date: 20200317
  Transmission Date: 20200409
  Serious: Yes (Death, Hospitalization, Other)
  Sender: FDA-Public Use
  Company Number: GB-JNJFOC-20200307063

PATIENT
  Sex: Male
  Weight: 103.6 kg

DRUGS (4)
  1. DIPROBASE                          /01132701/ [Concomitant]
     Dates: start: 20110921
  2. DOVOBET [Concomitant]
     Active Substance: BETAMETHASONE\CALCIPOTRIENE
  3. USTEKINUMAB [Suspect]
     Active Substance: USTEKINUMAB
     Indication: PSORIASIS
     Route: 058
     Dates: start: 20160617, end: 20180509
  4. ACICLOVIR [Concomitant]
     Active Substance: ACYCLOVIR
     Dates: start: 20140617

REACTIONS (1)
  - Metastatic carcinoma of the bladder [Fatal]

NARRATIVE: CASE EVENT DATE: 201805
